FAERS Safety Report 21055157 (Version 1)
Quarter: 2022Q3

REPORT INFORMATION
  Report Type: Spontaneous
  Country: IS (occurrence: IS)
  Receive Date: 20220707
  Receipt Date: 20220707
  Transmission Date: 20221027
  Serious: Yes (Death)
  Sender: FDA-Public Use
  Company Number: IS-JNJFOC-20220712195

PATIENT
  Sex: Male

DRUGS (4)
  1. UPTRAVI [Suspect]
     Active Substance: SELEXIPAG
     Indication: Pulmonary hypertension
     Route: 048
     Dates: start: 201903, end: 202206
  2. AMBRISENTAN [Concomitant]
     Active Substance: AMBRISENTAN
  3. NAPROXEN [Concomitant]
     Active Substance: NAPROXEN
  4. ALBUTEROL [Concomitant]
     Active Substance: ALBUTEROL

REACTIONS (1)
  - Cardiac arrest [Fatal]
